FAERS Safety Report 9783975 (Version 1)
Quarter: 2013Q4

REPORT INFORMATION
  Report Type: Spontaneous
  Country: US (occurrence: US)
  Receive Date: 20131226
  Receipt Date: 20131226
  Transmission Date: 20140711
  Serious: No
  Sender: FDA-Public Use
  Company Number: US-PFIZER INC-2013363903

PATIENT
  Age: 61 Year
  Sex: Female
  Weight: 54.42 kg

DRUGS (2)
  1. ADVIL [Suspect]
     Indication: BACK PAIN
     Dosage: 200 MG, 4 TIMES A DAY
     Dates: start: 20131213, end: 20131215
  2. ADVIL [Suspect]
     Indication: BACK PAIN
     Dosage: 200 MG, 4 TIMES A DAY
     Dates: start: 20131216, end: 20131216

REACTIONS (1)
  - Faeces pale [Not Recovered/Not Resolved]
